FAERS Safety Report 5521936-4 (Version None)
Quarter: 2007Q4

REPORT INFORMATION
  Report Type: 
  Country: None (occurrence: None)
  Receive Date: 20071120
  Receipt Date: 20070105
  Transmission Date: 20080405
  Serious: No
  Sender: FDA-Public Use
  Company Number: US-BRISTOL-MYERS SQUIBB COMPANY-13636154

PATIENT
  Age: 49 Year
  Sex: Male

DRUGS (1)
  1. AVALIDE [Suspect]
     Indication: CARDIOVASCULAR DISORDER

REACTIONS (3)
  - DIZZINESS [None]
  - HEADACHE [None]
  - NAUSEA [None]
